FAERS Safety Report 19626146 (Version 1)
Quarter: 2021Q3

REPORT INFORMATION
  Report Type: Spontaneous
  Country: US (occurrence: US)
  Receive Date: 20210728
  Receipt Date: 20210728
  Transmission Date: 20211014
  Serious: Yes (Other)
  Sender: FDA-Public Use
  Company Number: None

PATIENT
  Age: 47 Year
  Sex: Female

DRUGS (3)
  1. DUPIXENT [Suspect]
     Active Substance: DUPILUMAB
     Indication: NASAL POLYPS
     Route: 058
     Dates: start: 20210528
  2. VENTOLIN (SALBUTAMOL)  (SALBUTAMOL) UNKNOWN [Concomitant]
  3. SYMBICORT (BUDESONIDE, FORMOTEROL [Concomitant]

REACTIONS (1)
  - Rheumatoid arthritis [None]
